FAERS Safety Report 7373245-9 (Version None)
Quarter: 2011Q1

REPORT INFORMATION
  Report Type: 
  Country: None (occurrence: None)
  Receive Date: 20110324
  Receipt Date: 20110318
  Transmission Date: 20110831
  Serious: Yes (Other)
  Sender: FDA-Public Use
  Company Number: US-ABBOTT-11P-163-0712977-00

PATIENT
  Age: 52 Year
  Sex: Female
  Weight: 68.055 kg

DRUGS (2)
  1. SYNTHROID [Suspect]
     Indication: THYROIDECTOMY
  2. CHANTIX [Suspect]
     Indication: SMOKING CESSATION THERAPY
     Route: 048
     Dates: start: 20110227

REACTIONS (11)
  - NAUSEA [None]
  - ADVERSE DRUG REACTION [None]
  - LOCAL SWELLING [None]
  - SKIN WARM [None]
  - BURNING SENSATION [None]
  - RASH PRURITIC [None]
  - MALAISE [None]
  - HEADACHE [None]
  - INFLAMMATION [None]
  - RASH ERYTHEMATOUS [None]
  - SKIN FISSURES [None]
